FAERS Safety Report 4325312-1 (Version None)
Quarter: 2004Q1

REPORT INFORMATION
  Report Type: 
  Country: None (occurrence: None)
  Receive Date: 20040326
  Receipt Date: 20040326
  Transmission Date: 20041129
  Serious: Yes (Hospitalization)
  Sender: FDA-Public Use
  Company Number: None

PATIENT
  Age: 51 Year
  Sex: Male
  Weight: 89.8 kg

DRUGS (9)
  1. CISPLATIN [Suspect]
     Indication: LARYNGEAL CANCER
     Dosage: 215 MG ONCE IV
     Route: 042
     Dates: start: 20040312, end: 20040312
  2. COMPAZINE [Concomitant]
  3. FLUNISOLIDE [Concomitant]
  4. LISINOPRIL [Concomitant]
  5. SERTRALINE HCL [Concomitant]
  6. LORAZEPAM [Concomitant]
  7. FLUCONAZOLE [Concomitant]
  8. OXYCONTIN [Concomitant]
  9. OXYCODONE [Concomitant]

REACTIONS (5)
  - DEHYDRATION [None]
  - DRUG TOXICITY [None]
  - NAUSEA [None]
  - PHARYNGOLARYNGEAL PAIN [None]
  - VOMITING [None]
